FAERS Safety Report 6611011-X (Version None)
Quarter: 2010Q1

REPORT INFORMATION
  Report Type: 
  Country: None (occurrence: None)
  Receive Date: 20100222
  Receipt Date: 20100202
  Transmission Date: 20100710
  Serious: Yes (Hospitalization)
  Sender: FDA-Public Use
  Company Number: DSA_42239_2009

PATIENT
  Age: 34 Year
  Sex: Female

DRUGS (10)
  1. WELLBUTRIN SR [Suspect]
     Indication: DRUG USE FOR UNKNOWN INDICATION
     Dosage: (150 MG, ONE TABLET IN THE MORNING)
  2. LAMOTRIGINE [Concomitant]
  3. FERROUS FUMARATE [Concomitant]
  4. PANTOPRAZOLE [Concomitant]
  5. TRAZODONE HYDROCHLORIDE [Concomitant]
  6. LANSOPRAZOLE [Concomitant]
  7. DULOXETINE HYDROCHLORIDE [Concomitant]
  8. LACTULOSE [Concomitant]
  9. CROMOLYN SODIUM [Concomitant]
  10. NAPROBENE [Concomitant]

REACTIONS (4)
  - DEAFNESS [None]
  - OBSTRUCTIVE AIRWAYS DISORDER [None]
  - SUDDEN HEARING LOSS [None]
  - TINNITUS [None]
